FAERS Safety Report 8169020-8 (Version None)
Quarter: 2012Q1

REPORT INFORMATION
  Report Type: 
  Country: None (occurrence: None)
  Receive Date: 20120227
  Receipt Date: 20120222
  Transmission Date: 20120608
  Serious: Yes (Death, Other)
  Sender: FDA-Public Use
  Company Number: PHHY2012NL016087

PATIENT
  Sex: Male
  Weight: 500 kg

DRUGS (4)
  1. METHADONE HCL [Suspect]
     Indication: DEPENDENCE
     Dosage: 120 MG, UNK
     Route: 048
     Dates: start: 20090101
  2. MORPHINE [Suspect]
     Indication: METASTATIC PAIN
     Dosage: 40 MG, UNK
     Route: 048
     Dates: start: 20110503
  3. ZOLADEX [Suspect]
     Indication: PROSTATE CANCER
     Dosage: 10.8 MG, UNK
     Route: 058
     Dates: start: 20120113
  4. CASODEX [Concomitant]
     Dates: start: 20111103

REACTIONS (3)
  - PSYCHOTIC DISORDER [None]
  - DEATH [None]
  - SUICIDAL BEHAVIOUR [None]
